FAERS Safety Report 17612439 (Version 1)
Quarter: 2020Q2

REPORT INFORMATION
  Report Type: Other
  Country: JP (occurrence: JP)
  Receive Date: 20200401
  Receipt Date: 20200401
  Transmission Date: 20200713
  Serious: Yes (Other)
  Sender: FDA-Public Use
  Company Number: JP-EMD SERONO-9154432

PATIENT
  Age: 69 Year
  Sex: Male

DRUGS (1)
  1. AVELUMAB [Suspect]
     Active Substance: AVELUMAB
     Indication: NON-SMALL CELL LUNG CANCER

REACTIONS (3)
  - Cholangitis sclerosing [Recovering/Resolving]
  - Abdominal discomfort [Recovering/Resolving]
  - Off label use [Unknown]
